FAERS Safety Report 13538067 (Version 4)
Quarter: 2017Q2

REPORT INFORMATION
  Report Type: Spontaneous
  Country: UA (occurrence: UA)
  Receive Date: 20170512
  Receipt Date: 20170606
  Transmission Date: 20170830
  Serious: Yes (Hospitalization)
  Sender: FDA-Public Use
  Company Number: UA-CIPLA LTD.-2017UA08249

PATIENT

DRUGS (19)
  1. AMBROXOL [Suspect]
     Active Substance: AMBROXOL
     Indication: PNEUMONIA
  2. AMIKACIN [Suspect]
     Active Substance: AMIKACIN
     Indication: PNEUMONIA
     Dosage: 1000 MG, PER DAY
     Route: 065
  3. LEVOFLOXACIN. [Suspect]
     Active Substance: LEVOFLOXACIN
     Indication: PNEUMONIA
     Dosage: 750 MG, PER DAY
     Route: 065
  4. AMBROXOL [Suspect]
     Active Substance: AMBROXOL
     Indication: ENDOCARDITIS BACTERIAL
  5. AMBROXOL [Suspect]
     Active Substance: AMBROXOL
     Indication: ASTHENIA
     Dosage: 90 MG, PER DAY
     Route: 065
  6. AMOXICILLIN/CLAVULANIC ACID [Suspect]
     Active Substance: AMOXICILLIN\CLAVULANIC ACID
     Indication: PYREXIA
  7. DEXAMETHASONE. [Suspect]
     Active Substance: DEXAMETHASONE
     Indication: ENDOCARDITIS BACTERIAL
     Dosage: 16 MG/DAY DAY INTRAVENOUSLY IN 4 DOSES
     Route: 042
     Dates: start: 20151113
  8. AMBROXOL [Suspect]
     Active Substance: AMBROXOL
     Indication: PYREXIA
     Dosage: UNK
     Route: 065
  9. AMBROXOL [Suspect]
     Active Substance: AMBROXOL
     Indication: DYSPNOEA
     Dosage: 45 MG, DAILY, INTRAVENOUS INFUSION
     Route: 042
     Dates: start: 20151112
  10. CLARITHROMYCIN. [Suspect]
     Active Substance: CLARITHROMYCIN
     Indication: PNEUMONIA
     Dosage: 500 MG, PER DAY
     Route: 065
  11. CHILAC FORTE [Suspect]
     Active Substance: PROBIOTICS NOS
     Indication: ENDOCARDITIS BACTERIAL
     Dosage: UNK, TID, 90 DROPS DAILY
     Route: 065
     Dates: start: 20151112
  12. SULBACTAM AND CEFOPERAZONE [Suspect]
     Active Substance: CEFOPERAZONE SODIUM\SULBACTAM
     Indication: PNEUMONIA
     Dosage: 2 G, PER DAY
     Route: 065
  13. AMOXICILLIN/CLAVULANIC ACID [Suspect]
     Active Substance: AMOXICILLIN\CLAVULANIC ACID
     Indication: ASTHENIA
  14. TRIMETHOPRIM/SULFAMETHOXAZOLE [Suspect]
     Active Substance: SULFAMETHOXAZOLE\TRIMETHOPRIM
     Indication: ENDOCARDITIS BACTERIAL
     Dosage: 7680 MG/DAY IN 4 DOSES
     Route: 065
     Dates: start: 20151113
  15. MOXIFLOXACIN. [Suspect]
     Active Substance: MOXIFLOXACIN
     Indication: ENDOCARDITIS BACTERIAL
     Dosage: 400 MG, DAILY, INTRAVENOUSLY DRIP IN A SINGLE DOSE
     Route: 042
     Dates: start: 20151112, end: 20151113
  16. FLUCONAZOLE. [Suspect]
     Active Substance: FLUCONAZOLE
     Indication: ENDOCARDITIS BACTERIAL
     Dosage: 400 MG, DAILY INTRAVENOUSLY DRIP IN 2 DOSES
     Route: 042
     Dates: start: 20151112
  17. IVABRADINE HYDROCHLORIDE [Suspect]
     Active Substance: IVABRADINE HYDROCHLORIDE
     Indication: PNEUMONIA
     Dosage: 10 MG, PER DAY
     Route: 065
  18. AMOXICILLIN/CLAVULANIC ACID [Suspect]
     Active Substance: AMOXICILLIN\CLAVULANIC ACID
     Indication: DYSPNOEA
     Dosage: UNK
     Route: 065
  19. CLINDAMYCIN. [Suspect]
     Active Substance: CLINDAMYCIN
     Indication: ENDOCARDITIS BACTERIAL
     Dosage: 600 MG, PER OS IN 2 DOSES
     Route: 048
     Dates: start: 20151113

REACTIONS (5)
  - Pneumocystis jirovecii pneumonia [Unknown]
  - Oral candidiasis [Unknown]
  - HIV infection [Unknown]
  - Condition aggravated [Unknown]
  - Cor pulmonale [Unknown]
